FAERS Safety Report 5826971-4 (Version None)
Quarter: 2008Q3

REPORT INFORMATION
  Report Type: 
  Country: None (occurrence: None)
  Receive Date: 20080724
  Receipt Date: 20080708
  Transmission Date: 20090109
  Serious: Yes (Life-Threatening, Hospitalization)
  Sender: FDA-Public Use
  Company Number: 2008S1011970

PATIENT
  Age: 64 Year
  Sex: Male

DRUGS (1)
  1. INDAPAMIDE [Suspect]
     Indication: HYPERTENSION
     Dosage: 2.5 MG; DAILY;

REACTIONS (11)
  - ASTHENIA [None]
  - BRUGADA SYNDROME [None]
  - DIZZINESS [None]
  - HYPOKALAEMIA [None]
  - HYPONATRAEMIA [None]
  - LEFT VENTRICULAR HYPERTROPHY [None]
  - LONG QT SYNDROME [None]
  - SUDDEN CARDIAC DEATH [None]
  - TORSADE DE POINTES [None]
  - VENTRICULAR EXTRASYSTOLES [None]
  - VENTRICULAR TACHYCARDIA [None]
